FAERS Safety Report 23324230 (Version 1)
Quarter: 2023Q4

REPORT INFORMATION
  Report Type: Spontaneous
  Country: US (occurrence: US)
  Receive Date: 20231221
  Receipt Date: 20231221
  Transmission Date: 20240109
  Serious: No
  Sender: FDA-Public Use
  Company Number: US-drreddys-SPO/USA/23/0180904

PATIENT
  Age: 61 Year
  Sex: Female

DRUGS (2)
  1. CIPROFLOXACIN AND DEXAMETHASONE [Suspect]
     Active Substance: CIPROFLOXACIN HYDROCHLORIDE\DEXAMETHASONE
     Indication: Ear infection
     Dosage: 0.3 PERCENTAGE / 0.1PERCENTAGE 7.5 M
     Route: 061
     Dates: start: 20231015
  2. CIPROFLOXACIN AND DEXAMETHASONE [Suspect]
     Active Substance: CIPROFLOXACIN HYDROCHLORIDE\DEXAMETHASONE

REACTIONS (3)
  - Treatment noncompliance [Unknown]
  - Product physical consistency issue [Unknown]
  - Incorrect dose administered [Unknown]
